FAERS Safety Report 24580730 (Version 1)
Quarter: 2024Q4

REPORT INFORMATION
  Report Type: Spontaneous
  Country: GB (occurrence: GB)
  Receive Date: 20241105
  Receipt Date: 20241105
  Transmission Date: 20250115
  Serious: Yes (Other)
  Sender: PFIZER
  Company Number: GB-MHRA-TPP10672133C7016075YC1730364182995

PATIENT
  Age: 77 Year
  Sex: Male
  Weight: 63 kg

DRUGS (14)
  1. DOXYCYCLINE [Suspect]
     Active Substance: DOXYCYCLINE
     Dosage: 200 MG (NOW)
     Dates: start: 20240621
  2. DOXYCYCLINE [Suspect]
     Active Substance: DOXYCYCLINE
     Dosage: 100 MG, DAILY
  3. SIMPLA [Concomitant]
     Dosage: UNK (USE AS DIRECTED)
     Dates: start: 20240510
  4. SPIRIT [ETHANOL] [Concomitant]
     Dosage: UNK (USE AS DIRECTED)
     Dates: start: 20240510
  5. AMLODIPINE [Concomitant]
     Active Substance: AMLODIPINE BESYLATE
     Dosage: 1 DF, DAILY
     Dates: start: 20240621
  6. INDAPAMIDE [Concomitant]
     Active Substance: INDAPAMIDE
     Dosage: 1 DF, DAILY (TAKE ONE EACH MORNING)
     Dates: start: 20240621
  7. ACETAMINOPHEN [Concomitant]
     Active Substance: ACETAMINOPHEN
     Dosage: UNK (TAKE 1 OR 2, UP TO 4 TIMES/DAY)
     Dates: start: 20240621
  8. MORPHINE SULFATE [Concomitant]
     Active Substance: MORPHINE SULFATE
     Dosage: 90 MG, 2X/DAY (TAKE THREE (30MG) EVERY 12 HRS)
     Dates: start: 20240621
  9. BECLOMETHASONE\FORMOTEROL [Concomitant]
     Active Substance: BECLOMETHASONE\FORMOTEROL
     Dosage: UNK, 2X/DAY (INHALE 2 DOSES)
     Dates: start: 20240621
  10. ALBUTEROL [Concomitant]
     Active Substance: ALBUTEROL
     Dosage: UNK, 4X/DAY (INHALE 1 TO 2 DOSES)
     Dates: start: 20240621
  11. CLARITHROMYCIN [Concomitant]
     Active Substance: CLARITHROMYCIN
     Dosage: 1 DF, 2X/DAY (FOR 5 DAYS)
     Dates: start: 20241030
  12. PREDNISOLONE [Concomitant]
     Active Substance: PREDNISOLONE
     Dosage: 6 DF, 1X/DAY
     Dates: start: 20240510
  13. MORPHINE SULFATE [Concomitant]
     Active Substance: MORPHINE SULFATE
     Dosage: 5 ML (EVERY 4-6 HOURS, AS REQUIRED)
     Dates: start: 20230721
  14. CARBOHYDRATES\FATTY ACIDS\MINERALS\PROTEIN\VITAMINS [Concomitant]
     Active Substance: CARBOHYDRATES\FATTY ACIDS\MINERALS\PROTEIN\VITAMINS
     Dosage: 200 ML, 2X/DAY
     Dates: start: 20230815

REACTIONS (2)
  - Swollen tongue [Recovered/Resolved]
  - Rash [Recovered/Resolved]

NARRATIVE: CASE EVENT DATE: 20241031
